FAERS Safety Report 19119633 (Version 5)
Quarter: 2021Q3

REPORT INFORMATION
  Report Type: Report from Study
  Country: None (occurrence: CA)
  Receive Date: 20210412
  Receipt Date: 20210706
  Transmission Date: 20211014
  Serious: Yes (Other)
  Sender: FDA-Public Use
  Company Number: CA-ABBVIE-20K-028-3678025-00

PATIENT
  Sex: Female

DRUGS (6)
  1. RINVOQ [Suspect]
     Active Substance: UPADACITINIB
     Route: 048
     Dates: start: 20201216
  2. RINVOQ [Suspect]
     Active Substance: UPADACITINIB
     Route: 048
     Dates: start: 20210624
  3. PREDNISONE. [Concomitant]
     Active Substance: PREDNISONE
     Indication: PRODUCT USED FOR UNKNOWN INDICATION
  4. RINVOQ [Suspect]
     Active Substance: UPADACITINIB
     Indication: RHEUMATOID ARTHRITIS
     Route: 048
     Dates: start: 20201014, end: 2020
  5. AMOXICILLIN. [Concomitant]
     Active Substance: AMOXICILLIN
     Indication: PRODUCT USED FOR UNKNOWN INDICATION
  6. RINVOQ [Suspect]
     Active Substance: UPADACITINIB
     Route: 048
     Dates: start: 20210410, end: 2021

REACTIONS (11)
  - Rheumatoid arthritis [Unknown]
  - Drug ineffective [Unknown]
  - Swelling [Unknown]
  - Depressed mood [Unknown]
  - Infection susceptibility increased [Unknown]
  - Pelvic congestion [Unknown]
  - Tooth disorder [Unknown]
  - Tooth fracture [Not Recovered/Not Resolved]
  - Hypophagia [Unknown]
  - Infection [Unknown]
  - Gingival pain [Unknown]

NARRATIVE: CASE EVENT DATE: 2020
